FAERS Safety Report 19816265 (Version 1)
Quarter: 2021Q3

REPORT INFORMATION
  Report Type: Report from Study
  Country: CA (occurrence: CA)
  Receive Date: 20210909
  Receipt Date: 20210909
  Transmission Date: 20211014
  Serious: Yes (Other)
  Sender: FDA-Public Use
  Company Number: CA-TAKEDA-2021TUS055622

PATIENT
  Age: 27 Year
  Sex: Female

DRUGS (3)
  1. VOLTREX [Concomitant]
     Active Substance: DICLOFENAC SODIUM
     Indication: HERPES VIRUS INFECTION
     Dosage: 500 MILLIGRAM, QD
  2. SYNTHROID [Concomitant]
     Active Substance: LEVOTHYROXINE SODIUM
     Indication: THYROID DISORDER
     Dosage: 75 MICROGRAM
  3. VEDOLIZUMAB [Suspect]
     Active Substance: VEDOLIZUMAB
     Indication: COLITIS ULCERATIVE
     Dosage: 300 MILLIGRAM
     Route: 042
     Dates: start: 20191024

REACTIONS (2)
  - Hypothyroidism [Unknown]
  - Pregnancy [Unknown]
